FAERS Safety Report 6159092-4 (Version None)
Quarter: 2009Q2

REPORT INFORMATION
  Report Type: 
  Country: None (occurrence: None)
  Receive Date: 20090417
  Receipt Date: 20090414
  Transmission Date: 20091009
  Serious: Yes (Other)
  Sender: FDA-Public Use
  Company Number: PHEH2009US03021

PATIENT
  Age: 72 Year
  Sex: Female
  Weight: 68.934 kg

DRUGS (6)
  1. VOLTAREN-XR [Suspect]
     Indication: PAIN
     Dosage: UNK
     Dates: start: 20081001, end: 20081101
  2. VOLTAREN-XR [Suspect]
     Indication: SYSTEMIC LUPUS ERYTHEMATOSUS
  3. PLAQUENIL [Suspect]
     Indication: SYSTEMIC LUPUS ERYTHEMATOSUS
  4. VOLTAREN EMULGEL ^NOVARTIS^ [Concomitant]
     Indication: BURSITIS
  5. VOLTAREN EMULGEL ^NOVARTIS^ [Concomitant]
     Indication: ARTHRITIS
  6. TYLENOL [Concomitant]
     Indication: ARTHRITIS

REACTIONS (6)
  - ABDOMINAL DISCOMFORT [None]
  - ANOREXIA [None]
  - ASTHENIA [None]
  - DIARRHOEA [None]
  - DYSGEUSIA [None]
  - WEIGHT DECREASED [None]
